FAERS Safety Report 23347868 (Version 3)
Quarter: 2024Q1

REPORT INFORMATION
  Report Type: Report from Study
  Country: CA (occurrence: None)
  Receive Date: 20231228
  Receipt Date: 20240123
  Transmission Date: 20240410
  Serious: Yes (Other)
  Sender: FDA-Public Use
  Company Number: 2023A295042

PATIENT
  Sex: Female

DRUGS (4)
  1. TEZSPIRE [Suspect]
     Active Substance: TEZEPELUMAB-EKKO
     Indication: Asthma
     Route: 058
     Dates: start: 20221124
  2. PREDNISONE [Suspect]
     Active Substance: PREDNISONE
  3. ALBUTEROL [Concomitant]
     Active Substance: ALBUTEROL
     Dosage: 100.0UG AS REQUIRED
  4. SYMBICORT [Concomitant]
     Active Substance: BUDESONIDE\FORMOTEROL FUMARATE DIHYDRATE
     Dosage: 2 PUFFS BID

REACTIONS (9)
  - Fall [Unknown]
  - Upper limb fracture [Unknown]
  - Thoracic vertebral fracture [Unknown]
  - Musculoskeletal discomfort [Unknown]
  - Wheezing [Unknown]
  - Productive cough [Unknown]
  - Sleep disorder due to general medical condition, insomnia type [Unknown]
  - Discomfort [Unknown]
  - Drug ineffective [Unknown]
